FAERS Safety Report 25342170 (Version 1)
Quarter: 2025Q2

REPORT INFORMATION
  Report Type: Other
  Country: GB (occurrence: GB)
  Receive Date: 20250521
  Receipt Date: 20250521
  Transmission Date: 20250717
  Serious: Yes (Other)
  Sender: Atnahs Healthcare
  Company Number: GB-MHRA-TPP26494436C1873962YC1746785535291

PATIENT
  Age: 41 Year
  Sex: Female
  Weight: 125 kg

DRUGS (7)
  1. NAPROXEN [Suspect]
     Active Substance: NAPROXEN
     Indication: Ill-defined disorder
     Route: 065
     Dates: start: 20250430
  2. EUMOVATE [Concomitant]
     Active Substance: CLOBETASONE BUTYRATE
     Indication: Ill-defined disorder
     Route: 065
     Dates: start: 20250326, end: 20250402
  3. HYDROMOL [SODIUM PIDOLATE] [Concomitant]
     Indication: Ill-defined disorder
     Route: 065
     Dates: start: 20250326, end: 20250423
  4. COCODAMOL [Concomitant]
     Active Substance: ACETAMINOPHEN\CODEINE PHOSPHATE
     Indication: Ill-defined disorder
     Route: 065
     Dates: start: 20250430
  5. OMEPRAZOLE [Concomitant]
     Active Substance: OMEPRAZOLE
     Indication: Ill-defined disorder
     Route: 065
     Dates: start: 20220411
  6. FOLIC ACID [Concomitant]
     Active Substance: FOLIC ACID
     Indication: Ill-defined disorder
     Route: 065
     Dates: start: 20220411
  7. SODIUM ALGINATE [Concomitant]
     Active Substance: SODIUM ALGINATE
     Indication: Ill-defined disorder
     Dosage: 10 ML QDS
     Route: 065
     Dates: start: 20220411

REACTIONS (2)
  - Joint swelling [Not Recovered/Not Resolved]
  - Fluid retention [Unknown]
